FAERS Safety Report 4490976-9 (Version None)
Quarter: 2004Q4

REPORT INFORMATION
  Report Type: 
  Country: None (occurrence: None)
  Receive Date: 20041027
  Receipt Date: 20041011
  Transmission Date: 20050328
  Serious: Yes (Death)
  Sender: FDA-Public Use
  Company Number: L04-SWE-06630-38

PATIENT
  Age: 27 Year
  Sex: Female

DRUGS (8)
  1. CITALOPRAM [Suspect]
  2. PROPOXYPHENE [Concomitant]
  3. ACETAMINOPHEN [Concomitant]
  4. ORPHENADRINE HYDROCHLORIDE FILM TAB [Concomitant]
  5. MIANSERIN [Concomitant]
  6. METHOTRIMEPRAZINE [Concomitant]
  7. CARBAMAZEPINE [Concomitant]
  8. ZOPICLONE [Concomitant]

REACTIONS (2)
  - COMPLETED SUICIDE [None]
  - THERAPEUTIC AGENT TOXICITY [None]
